FAERS Safety Report 14506147 (Version 2)
Quarter: 2018Q1

REPORT INFORMATION
  Report Type: Spontaneous
  Country: US (occurrence: US)
  Receive Date: 20180208
  Receipt Date: 20180224
  Transmission Date: 20180509
  Serious: Yes (Life-Threatening, Hospitalization, Other)
  Sender: FDA-Public Use
  Company Number: US-TEVA-2018-US-855803

PATIENT
  Age: 58 Year
  Sex: Female

DRUGS (19)
  1. ADRIAMYCIN [Suspect]
     Active Substance: DOXORUBICIN HYDROCHLORIDE
     Indication: LEIOMYOSARCOMA RECURRENT
     Dosage: 25 MG/M2 DAILY; 25 MG/M2/DAY OVER 24 HOURS ON DAYS 1 TO 3
     Route: 042
  2. MESNA. [Suspect]
     Active Substance: MESNA
     Indication: LEIOMYOSARCOMA RECURRENT
     Dosage: 2500 MG/M2 OVER 12 HOURS ON DAY 5
     Route: 042
  3. FLUCONAZOLE. [Concomitant]
     Active Substance: FLUCONAZOLE
     Indication: CANDIDA INFECTION
     Dosage: 200 MILLIGRAM DAILY;
     Route: 048
  4. DOCUSATE/SENNA [Concomitant]
     Active Substance: DOCUSATE SODIUM\SENNA LEAF
     Indication: CONSTIPATION
     Dosage: 50/8.6 MG DAILY
     Route: 048
  5. MESNA. [Suspect]
     Active Substance: MESNA
     Indication: LEIOMYOSARCOMA RECURRENT
     Dosage: 2500 MG/M2 OVER 24 HOURS ON DAYS 1 THROUGH 4, THEN 2500 MG/M2 OVER 12 HOURS ON DAY 5
     Route: 042
  6. THIAMINE. [Concomitant]
     Active Substance: THIAMINE
     Indication: PROPHYLAXIS
     Dosage: 100 MILLIGRAM DAILY;
     Route: 048
  7. PAROXETINE. [Concomitant]
     Active Substance: PAROXETINE
     Indication: DEPRESSION
     Dosage: 20 MILLIGRAM DAILY;
     Route: 048
  8. METHYLENE BLUE. [Suspect]
     Active Substance: METHYLENE BLUE
     Indication: ENCEPHALOPATHY
     Route: 042
  9. BISACODYL. [Concomitant]
     Active Substance: BISACODYL
     Dosage: 5 MILLIGRAM DAILY;
     Route: 048
  10. NIFEDIPINE. [Concomitant]
     Active Substance: NIFEDIPINE
     Indication: HYPERTENSION
     Dosage: EVERY MORNING
     Route: 048
  11. NIFEDIPINE. [Concomitant]
     Active Substance: NIFEDIPINE
     Dosage: EVERY EVENING
     Route: 048
  12. ONDANSETRON [Concomitant]
     Active Substance: ONDANSETRON
     Route: 042
  13. IFOSFAMIDE. [Suspect]
     Active Substance: IFOSFAMIDE
     Indication: LEIOMYOSARCOMA RECURRENT
     Dosage: 2000 MG/M2/DAY FOR FOUR DAYS
     Route: 042
  14. LOSARTAN. [Concomitant]
     Active Substance: LOSARTAN
     Dosage: 50 MILLIGRAM DAILY;
     Route: 048
  15. DEXAMETHASONE. [Concomitant]
     Active Substance: DEXAMETHASONE
     Dosage: 18 MILLIGRAM DAILY;
     Route: 048
  16. IFOSFAMIDE. [Suspect]
     Active Substance: IFOSFAMIDE
     Indication: LEIOMYOSARCOMA RECURRENT
     Dosage: 2500 MG/M2 DAILY; 2500 MG/M2/DAY OVER 24 HOURS ON DAYS 1 THROUGH 4
     Route: 042
  17. CLONIDINE. [Concomitant]
     Active Substance: CLONIDINE
     Route: 048
  18. METOCLOPRAMIDE. [Concomitant]
     Active Substance: METOCLOPRAMIDE
     Indication: VOMITING
     Dosage: 10 MG AT MEALS AND AT BEDTIME
     Route: 048
  19. OXYCODONE [Concomitant]
     Active Substance: OXYCODONE
     Indication: PAIN
     Route: 048

REACTIONS (3)
  - Encephalopathy [Recovered/Resolved]
  - Off label use [Recovered/Resolved]
  - Serotonin syndrome [Recovered/Resolved]
